FAERS Safety Report 6846644-9 (Version None)
Quarter: 2010Q3

REPORT INFORMATION
  Report Type: 
  Country: None (occurrence: None)
  Receive Date: 20100715
  Receipt Date: 20070917
  Transmission Date: 20110219
  Serious: No
  Sender: FDA-Public Use
  Company Number: US-PFIZER INC-2007079360

PATIENT
  Age: 55 Year
  Sex: Male
  Weight: 73.9 kg

DRUGS (13)
  1. CHANTIX [Suspect]
     Indication: SMOKING CESSATION THERAPY
     Dosage: INTERVAL: EVERY DAY
     Route: 048
     Dates: start: 20070801, end: 20070901
  2. NEXIUM [Concomitant]
  3. SOMA [Concomitant]
  4. GABAPENTIN [Concomitant]
  5. LORTAB [Concomitant]
  6. VENLAFAXINE [Concomitant]
  7. ATENOLOL [Concomitant]
  8. POTASSIUM CHLORIDE [Concomitant]
  9. ALL OTHER THERAPEUTIC PRODUCTS [Concomitant]
  10. LORAZEPAM [Concomitant]
  11. PROPYLTHIOURACIL [Concomitant]
  12. MIRTAZAPINE [Concomitant]
  13. CHLORDIAZEPOXIDE [Concomitant]

REACTIONS (4)
  - DIPLOPIA [None]
  - DIZZINESS [None]
  - FALL [None]
  - ILL-DEFINED DISORDER [None]
